FAERS Safety Report 24551363 (Version 1)
Quarter: 2024Q4

REPORT INFORMATION
  Report Type: Spontaneous
  Country: US (occurrence: US)
  Receive Date: 20241026
  Receipt Date: 20241026
  Transmission Date: 20250114
  Serious: No
  Sender: Long Grove Pharmaceuticals
  Company Number: US-Long Grove-000066

PATIENT
  Age: 50 Year
  Sex: Female

DRUGS (1)
  1. NOREPINEPHRINE [Suspect]
     Active Substance: NOREPINEPHRINE\NOREPINEPHRINE BITARTRATE
     Indication: Product used for unknown indication
     Dosage: STRENGTH: 16 MG/250 ML,INFUSION BAGS

REACTIONS (2)
  - Accidental exposure to product [Unknown]
  - Device connection issue [None]
